FAERS Safety Report 6522758-8 (Version None)
Quarter: 2009Q4

REPORT INFORMATION
  Report Type: 
  Country: None (occurrence: None)
  Receive Date: 20091230
  Receipt Date: 20091218
  Transmission Date: 20100525
  Serious: Yes (Hospitalization)
  Sender: FDA-Public Use
  Company Number: GB-PFIZER INC-2009311901

PATIENT
  Age: 42 Year
  Sex: Female

DRUGS (9)
  1. PHENYTOIN AND PHENYTOIN SODIUM [Suspect]
     Indication: MENINGIOMA
     Dosage: 300 MG, UNK
     Route: 048
     Dates: start: 20091116, end: 20091209
  2. DEXAMETHASONE [Suspect]
     Indication: MENINGIOMA
     Dosage: UNK
     Route: 048
     Dates: start: 20091116, end: 20091125
  3. AMOXICILLIN [Concomitant]
  4. CYCLIZINE [Concomitant]
  5. FERROUS SULFATE TAB [Concomitant]
  6. METRONIDAZOLE [Concomitant]
  7. NYSTATIN [Concomitant]
  8. OMEPRAZOLE [Concomitant]
  9. PARACETAMOL [Concomitant]

REACTIONS (2)
  - LIVER FUNCTION TEST ABNORMAL [None]
  - MOUTH ULCERATION [None]
